FAERS Safety Report 23863918 (Version 2)
Quarter: 2024Q3

REPORT INFORMATION
  Report Type: Spontaneous
  Country: US (occurrence: US)
  Receive Date: 20240516
  Receipt Date: 20240723
  Transmission Date: 20241016
  Serious: Yes (Hospitalization, Other)
  Sender: SANOFI AVENTIS
  Company Number: US-SA-SAC20240417000610

PATIENT
  Age: 15 Year
  Sex: Female

DRUGS (2)
  1. DUPIXENT [Suspect]
     Active Substance: DUPILUMAB
     Indication: Dermatitis atopic
     Dosage: 300 MG, QOW
     Route: 058
     Dates: start: 202403
  2. VENOFER [Suspect]
     Active Substance: IRON SUCROSE
     Dosage: UNK, QW
     Route: 065
     Dates: start: 2024

REACTIONS (3)
  - Loss of consciousness [Unknown]
  - Hospitalisation [Unknown]
  - Headache [Unknown]

NARRATIVE: CASE EVENT DATE: 20240101
